FAERS Safety Report 7816056-X (Version None)
Quarter: 2011Q4

REPORT INFORMATION
  Report Type: 
  Country: None (occurrence: None)
  Receive Date: 20111015
  Receipt Date: 20111004
  Transmission Date: 20120403
  Serious: Yes (Other)
  Sender: FDA-Public Use
  Company Number: JP-ASTRAZENECA-2011SE61149

PATIENT
  Age: 69 Year
  Sex: Female

DRUGS (10)
  1. PHENOBARBITAL TAB [Concomitant]
  2. ZONISAMIDE [Concomitant]
  3. OMEPRAZOLE [Concomitant]
  4. SEROQUEL [Suspect]
     Indication: SCHIZOPHRENIA
     Route: 048
     Dates: start: 20100901, end: 20110601
  5. SEROQUEL [Suspect]
     Route: 048
     Dates: start: 20110701, end: 20110801
  6. TEGRETOL [Concomitant]
  7. MAGNESIUM SULFATE [Concomitant]
  8. ALOSENN [Concomitant]
  9. LAXOBERON [Concomitant]
  10. DEPAKENE [Concomitant]

REACTIONS (2)
  - ABULIA [None]
  - SOMNOLENCE [None]
